FAERS Safety Report 14297637 (Version 5)
Quarter: 2018Q4

REPORT INFORMATION
  Report Type: Spontaneous
  Country: US (occurrence: US)
  Receive Date: 20171218
  Receipt Date: 20181220
  Transmission Date: 20190204
  Serious: No
  Sender: FDA-Public Use
  Company Number: US-ASTRAZENECA-2017SF26960

PATIENT
  Age: 63 Year
  Sex: Male

DRUGS (3)
  1. BYETTA [Concomitant]
     Active Substance: EXENATIDE
     Route: 065
  2. BYDUREON [Suspect]
     Active Substance: EXENATIDE
     Dosage: ONCE A WEEK
     Route: 065
  3. BYDUREON BCISE [Suspect]
     Active Substance: EXENATIDE
     Route: 065

REACTIONS (8)
  - Circumstance or information capable of leading to medication error [Unknown]
  - Injection site extravasation [Unknown]
  - Wrong technique in product usage process [Unknown]
  - Injection site mass [Unknown]
  - Device leakage [Unknown]
  - Device issue [Unknown]
  - Underdose [Unknown]
  - Intentional device misuse [Unknown]
